FAERS Safety Report 5424221-4 (Version None)
Quarter: 2007Q3

REPORT INFORMATION
  Report Type: 
  Country: None (occurrence: None)
  Receive Date: 20070823
  Receipt Date: 20070811
  Transmission Date: 20080115
  Serious: Yes (Other)
  Sender: FDA-Public Use
  Company Number: US-PFIZER INC-2007067746

PATIENT
  Sex: Male
  Weight: 88.5 kg

DRUGS (6)
  1. CHANTIX [Suspect]
     Indication: SMOKING CESSATION THERAPY
     Dosage: FREQ:EVERY DAY
  2. ZOLOFT [Suspect]
     Indication: STRESS
  3. ZOLOFT [Suspect]
     Indication: ANXIETY
  4. SERTRALINE [Suspect]
     Indication: STRESS
  5. SERTRALINE [Suspect]
     Indication: ANXIETY
  6. BENICAR [Concomitant]

REACTIONS (3)
  - ANXIETY [None]
  - DEPRESSION [None]
  - STRESS [None]
